FAERS Safety Report 8508872 (Version 2)
Quarter: 2013Q2

REPORT INFORMATION
  Report Type: Spontaneous
  Country: US (occurrence: US)
  Receive Date: 20120412
  Receipt Date: 20130603
  Transmission Date: 20140414
  Serious: No
  Sender: FDA-Public Use
  Company Number: US-ASTRAZENECA-2011SE39131

PATIENT
  Age: 35 Year
  Sex: Male

DRUGS (1)
  1. NEXIUM [Suspect]
     Route: 048

REACTIONS (4)
  - Regurgitation [Unknown]
  - Gastrooesophageal reflux disease [Unknown]
  - Activities of daily living impaired [Unknown]
  - Drug dose omission [Unknown]
